FAERS Safety Report 18914185 (Version 1)
Quarter: 2021Q1

REPORT INFORMATION
  Report Type: Spontaneous
  Country: IT (occurrence: IT)
  Receive Date: 20210218
  Receipt Date: 20210218
  Transmission Date: 20210420
  Serious: Yes (Other)
  Sender: FDA-Public Use
  Company Number: IT-ASTRAZENECA-2021A045807

PATIENT
  Age: 89 Year
  Sex: Female

DRUGS (12)
  1. ZYLORIC [Concomitant]
     Active Substance: ALLOPURINOL
  2. TRITTICO [Concomitant]
     Active Substance: TRAZODONE HYDROCHLORIDE
  3. LYRICA [Concomitant]
     Active Substance: PREGABALIN
  4. NIFEREX [Concomitant]
  5. LANOXIN [Concomitant]
     Active Substance: DIGOXIN
  6. VERSATIS [Concomitant]
     Active Substance: LIDOCAINE
  7. DIBASE [Concomitant]
     Active Substance: CHOLECALCIFEROL
  8. LUVION [Concomitant]
  9. SEROQUEL [Suspect]
     Active Substance: QUETIAPINE FUMARATE
     Route: 048
  10. BISOPROLOLO [Concomitant]
     Active Substance: BISOPROLOL FUMARATE
  11. OMEPRAZEN [Concomitant]
     Active Substance: OMEPRAZOLE
  12. LASIX [Concomitant]
     Active Substance: FUROSEMIDE

REACTIONS (2)
  - Accidental overdose [Recovered/Resolved]
  - Sopor [Recovered/Resolved]

NARRATIVE: CASE EVENT DATE: 20200823
